FAERS Safety Report 18477167 (Version 1)
Quarter: 2020Q4

REPORT INFORMATION
  Report Type: Spontaneous
  Country: US (occurrence: US)
  Receive Date: 20201107
  Receipt Date: 20201107
  Transmission Date: 20210114
  Serious: Yes (Other)
  Sender: FDA-Public Use
  Company Number: US-TAKEDA-2020TUS046223

PATIENT
  Age: 61 Year
  Sex: Female
  Weight: 111 kg

DRUGS (32)
  1. COLACE [Concomitant]
     Active Substance: DOCUSATE SODIUM
  2. NOVOLOG [Concomitant]
     Active Substance: INSULIN ASPART
  3. MIRAPEX [Concomitant]
     Active Substance: PRAMIPEXOLE DIHYDROCHLORIDE
  4. NITROGLYCERIN. [Concomitant]
     Active Substance: NITROGLYCERIN
  5. PREDNISONE. [Concomitant]
     Active Substance: PREDNISONE
  6. ASPIRIN. [Concomitant]
     Active Substance: ASPIRIN
  7. FLAX OIL [Concomitant]
  8. SINGULAIR [Concomitant]
     Active Substance: MONTELUKAST SODIUM
  9. PREVAGEN [Concomitant]
     Active Substance: DIETARY SUPPLEMENT
  10. B3 [Concomitant]
  11. BUMEX [Concomitant]
     Active Substance: BUMETANIDE
  12. CUVITRU [Suspect]
     Active Substance: HUMAN IMMUNOGLOBULIN G
     Indication: IMMUNODEFICIENCY COMMON VARIABLE
     Route: 065
  13. HYQVIA [Suspect]
     Active Substance: HUMAN IMMUNOGLOBULIN G\HYALURONIDASE RECOMBINANT HUMAN
     Indication: IMMUNODEFICIENCY COMMON VARIABLE
     Route: 065
  14. COENZYME Q10 [Concomitant]
     Active Substance: DIETARY SUPPLEMENT\UBIDECARENONE
  15. LOSARTAN. [Concomitant]
     Active Substance: LOSARTAN
  16. MELATONIN [Concomitant]
     Active Substance: MELATONIN
  17. MUCINEX [Concomitant]
     Active Substance: GUAIFENESIN
  18. CLARITIN [Concomitant]
     Active Substance: LORATADINE
  19. MECLIZINE [Concomitant]
     Active Substance: MECLIZINE HYDROCHLORIDE
  20. BACLOFEN. [Concomitant]
     Active Substance: BACLOFEN
  21. BREO INH [Concomitant]
  22. PHENERGAN [Concomitant]
     Active Substance: PROMETHAZINE HYDROCHLORIDE
  23. SYNTHROID [Concomitant]
     Active Substance: LEVOTHYROXINE SODIUM
  24. MAGNESIUM [Concomitant]
     Active Substance: MAGNESIUM
  25. KLOR-CON [Concomitant]
     Active Substance: POTASSIUM CHLORIDE
  26. CALCIUM [Concomitant]
     Active Substance: CALCIUM
  27. DILTIAZEM. [Concomitant]
     Active Substance: DILTIAZEM
  28. PRAVASTATIN. [Concomitant]
     Active Substance: PRAVASTATIN
  29. CRANBERRY. [Concomitant]
     Active Substance: CRANBERRY
  30. AMITIZA [Concomitant]
     Active Substance: LUBIPROSTONE
  31. FLUTICASONE SPRAY [Concomitant]
     Active Substance: FLUTICASONE
  32. ASTEPRO SPRAY [Concomitant]

REACTIONS (12)
  - Infusion site mass [None]
  - Weight decreased [Recovered/Resolved]
  - Limb crushing injury [Unknown]
  - Limb injury [Unknown]
  - Haemorrhage [Unknown]
  - Malaise [Unknown]
  - Decreased appetite [Recovered/Resolved]
  - Diarrhoea [Unknown]
  - Fall [Unknown]
  - Insurance issue [Unknown]
  - COVID-19 [Unknown]
  - Vomiting [Unknown]

NARRATIVE: CASE EVENT DATE: 202008
